FAERS Safety Report 4372538-7 (Version None)
Quarter: 2004Q2

REPORT INFORMATION
  Report Type: 
  Country: None (occurrence: None)
  Receive Date: 20040608
  Receipt Date: 20040527
  Transmission Date: 20050107
  Serious: Yes (Other)
  Sender: FDA-Public Use
  Company Number: PHNU2004DE01963

PATIENT
  Sex: Male

DRUGS (2)
  1. TEGRETOL-XR [Suspect]
     Indication: MENTAL DISORDER
     Dosage: 200 MG, BID
     Route: 048
  2. FLUANXOL ^BAYER^ [Concomitant]
     Dosage: UNK, UNK

REACTIONS (6)
  - DIZZINESS [None]
  - HEPATIC ENZYME INCREASED [None]
  - OEDEMA PERIPHERAL [None]
  - PRURITUS [None]
  - RASH MACULAR [None]
  - WEIGHT DECREASED [None]
